FAERS Safety Report 7409855-X (Version None)
Quarter: 2011Q2

REPORT INFORMATION
  Report Type: 
  Country: None (occurrence: None)
  Receive Date: 20110412
  Receipt Date: 20110406
  Transmission Date: 20111010
  Serious: Yes (Death, Hospitalization)
  Sender: FDA-Public Use
  Company Number: IN-ELI_LILLY_AND_COMPANY-IN201104001990

PATIENT
  Age: 55 Year
  Sex: Female

DRUGS (4)
  1. ANTIBIOTICS [Concomitant]
  2. OXYGEN [Concomitant]
  3. XIGRIS [Suspect]
     Dosage: UNK, UNKNOWN
     Route: 065
     Dates: start: 20110329
  4. HAEMODIALYTICS AND HAEMOFILTRATES [Concomitant]

REACTIONS (3)
  - SEPSIS [None]
  - MULTI-ORGAN FAILURE [None]
  - HYPOTENSION [None]
